FAERS Safety Report 5901725-9 (Version None)
Quarter: 2008Q3

REPORT INFORMATION
  Report Type: 
  Country: None (occurrence: None)
  Receive Date: 20080929
  Receipt Date: 20080923
  Transmission Date: 20090109
  Serious: Yes (Other)
  Sender: FDA-Public Use
  Company Number: B0538960A

PATIENT
  Age: 17 Year
  Sex: Female

DRUGS (2)
  1. AUGMENTIN '125' [Suspect]
     Dosage: 625MG THREE TIMES PER DAY
     Route: 048
     Dates: start: 20080916, end: 20080917
  2. NO CONCURRENT MEDICATION [Concomitant]

REACTIONS (1)
  - BRONCHOSPASM [None]
